FAERS Safety Report 9775735 (Version 2)
Quarter: 2014Q1

REPORT INFORMATION
  Report Type: Other
  Country: CH (occurrence: CH)
  Receive Date: 20131220
  Receipt Date: 20140102
  Transmission Date: 20141002
  Serious: Yes (Hospitalization)
  Sender: FDA-Public Use
  Company Number: CH-BRISTOL-MYERS SQUIBB COMPANY-19929967

PATIENT
  Age: 58 Year
  Sex: Male
  Weight: 150 kg

DRUGS (1)
  1. YERVOY [Suspect]
     Indication: MELANOMA RECURRENT
     Dosage: SECOND CYCLE ON 25-JAN-2012
     Dates: start: 20120106

REACTIONS (1)
  - Colitis [Unknown]
